FAERS Safety Report 5132249-7 (Version None)
Quarter: 2006Q4

REPORT INFORMATION
  Report Type: 
  Country: None (occurrence: None)
  Receive Date: 20061017
  Receipt Date: 20060929
  Transmission Date: 20070319
  Serious: Yes (Hospitalization)
  Sender: FDA-Public Use
  Company Number: 8018911

PATIENT
  Age: 52 Year
  Sex: Female

DRUGS (4)
  1. KEPPRA [Suspect]
     Indication: EPILEPSY
     Dosage: 1500 MG 2/D PO
     Route: 048
     Dates: start: 20040101, end: 20060726
  2. KEPPRA [Suspect]
     Indication: EPILEPSY
     Dosage: 1500 MG 2/D PO
     Route: 048
     Dates: start: 20060902
  3. LEVAQUIN [Suspect]
     Indication: URINARY TRACT INFECTION
     Dates: start: 20060801, end: 20060801
  4. DILANTIN [Suspect]
     Indication: EPILEPSY
     Dates: start: 20060726, end: 20060902

REACTIONS (10)
  - BODY TEMPERATURE INCREASED [None]
  - CONVULSION [None]
  - FALL [None]
  - HYPERSENSITIVITY [None]
  - HYPOTENSION [None]
  - INCORRECT DOSE ADMINISTERED [None]
  - OEDEMA [None]
  - RASH [None]
  - TRAUMATIC BRAIN INJURY [None]
  - URINARY TRACT INFECTION [None]
